FAERS Safety Report 7961608-X (Version None)
Quarter: 2011Q4

REPORT INFORMATION
  Report Type: 
  Country: None (occurrence: None)
  Receive Date: 20111202
  Receipt Date: 20111202
  Transmission Date: 20120403
  Serious: Yes (Other)
  Sender: FDA-Public Use
  Company Number: None

PATIENT
  Sex: Male
  Weight: 54.8 kg

DRUGS (1)
  1. LEVETIRACETAM [Suspect]
     Indication: CONVULSION
     Dosage: 500 MG II BID ORAL
     Route: 048
     Dates: start: 20111109, end: 20111121

REACTIONS (3)
  - RASH MACULO-PAPULAR [None]
  - SOMNOLENCE [None]
  - PRODUCT SUBSTITUTION ISSUE [None]
